FAERS Safety Report 9240365 (Version 1)
Quarter: 2013Q2

REPORT INFORMATION
  Report Type: Spontaneous
  Country: US (occurrence: None)
  Receive Date: 20130418
  Receipt Date: 20130418
  Transmission Date: 20140414
  Serious: Yes (Other)
  Sender: FDA-Public Use
  Company Number: None

PATIENT
  Age: 35 Year
  Sex: Female
  Weight: 58.97 kg

DRUGS (1)
  1. AZELASTINE HYDROCHLORIDE [Suspect]
     Indication: CHRONIC SINUSITIS
     Route: 045
     Dates: start: 20121129, end: 20130227

REACTIONS (6)
  - Hypoaesthesia oral [None]
  - Hypoaesthesia [None]
  - Paraesthesia [None]
  - Peripheral coldness [None]
  - Feeling jittery [None]
  - Anxiety [None]
